FAERS Safety Report 8260212-6 (Version None)
Quarter: 2012Q2

REPORT INFORMATION
  Report Type: 
  Country: None (occurrence: None)
  Receive Date: 20120404
  Receipt Date: 20120322
  Transmission Date: 20120825
  Serious: Yes (Death, Hospitalization)
  Sender: FDA-Public Use
  Company Number: JP-MYLANLABS-2012S1006410

PATIENT
  Age: 64 Year
  Sex: Male

DRUGS (2)
  1. CISPLATIN [Suspect]
     Indication: OESOPHAGEAL CARCINOMA
     Dosage: 130 MG/BODY ON DAYS 1-5 AND 29-33
     Route: 065
  2. FLUOROURACIL [Suspect]
     Indication: OESOPHAGEAL CARCINOMA
     Dosage: 1300 MG/BODY, DAYS 1-5 AND 29-33
     Route: 065

REACTIONS (7)
  - HYPOXIA [None]
  - DECREASED APPETITE [None]
  - INTERSTITIAL LUNG DISEASE [None]
  - STOMATITIS [None]
  - SKIN HYPERPIGMENTATION [None]
  - OESOPHAGITIS [None]
  - RADIATION PNEUMONITIS [None]
